FAERS Safety Report 7247797-3 (Version None)
Quarter: 2011Q1

REPORT INFORMATION
  Report Type: 
  Country: None (occurrence: None)
  Receive Date: 20110127
  Receipt Date: 20110114
  Transmission Date: 20110831
  Serious: Yes (Hospitalization)
  Sender: FDA-Public Use
  Company Number: US-ELI_LILLY_AND_COMPANY-US201101003957

PATIENT
  Sex: Female

DRUGS (6)
  1. CYMBALTA [Suspect]
     Dosage: 60 MG, DAILY (1/D)
  2. CYMBALTA [Suspect]
     Dosage: 1 D/F, UNKNOWN
  3. CYMBALTA [Suspect]
     Dosage: 90 MG, DAILY (1/D)
  4. CYMBALTA [Suspect]
     Dosage: 120 MG, DAILY (1/D)
  5. CYMBALTA [Suspect]
     Dosage: 30 MG, DAILY (1/D)
  6. CYMBALTA [Suspect]
     Indication: FIBROMYALGIA
     Dosage: 30 MG, DAILY (1/D)

REACTIONS (1)
  - PSYCHOTIC DISORDER [None]
